FAERS Safety Report 6099266-4 (Version None)
Quarter: 2009Q1

REPORT INFORMATION
  Report Type: 
  Country: None (occurrence: None)
  Receive Date: 20090303
  Receipt Date: 20090227
  Transmission Date: 20090719
  Serious: Yes (Death)
  Sender: FDA-Public Use
  Company Number: US-JNJFOC-20090300182

PATIENT
  Age: 81 Year
  Sex: Female

DRUGS (2)
  1. LEVAQUIN [Suspect]
     Indication: URINARY TRACT INFECTION
     Route: 048
  2. PREDNISONE [Concomitant]
     Indication: AUTOIMMUNE DISORDER
     Route: 048

REACTIONS (3)
  - ADVERSE EVENT [None]
  - CLOSTRIDIUM DIFFICILE COLITIS [None]
  - DEATH [None]
